FAERS Safety Report 16912617 (Version 1)
Quarter: 2019Q4

REPORT INFORMATION
  Report Type: Spontaneous
  Country: US (occurrence: US)
  Receive Date: 20191014
  Receipt Date: 20191014
  Transmission Date: 20200122
  Serious: Yes (Hospitalization, Other)
  Sender: FDA-Public Use
  Company Number: US-ROCHE-83505

PATIENT
  Age: 6 Year
  Sex: Male
  Weight: 22 kg

DRUGS (6)
  1. MIDAZOLAM HYDROCHLORIDE. [Suspect]
     Active Substance: MIDAZOLAM HYDROCHLORIDE
     Indication: SEDATION
     Route: 042
  2. KETAMINE [Interacting]
     Active Substance: KETAMINE
     Indication: SEDATION
     Route: 065
  3. GLYCOPYRROLATE [GLYCOPYRRONIUM BROMIDE] [Concomitant]
     Active Substance: GLYCOPYRROLATE
     Indication: SEDATION
     Route: 042
  4. RITALIN [Interacting]
     Active Substance: METHYLPHENIDATE HYDROCHLORIDE
     Indication: ATTENTION DEFICIT/HYPERACTIVITY DISORDER
     Route: 065
  5. MIDAZOLAM [Suspect]
     Active Substance: MIDAZOLAM HYDROCHLORIDE
     Indication: SEDATIVE THERAPY
     Route: 048
  6. MIDAZOLAM [Interacting]
     Active Substance: MIDAZOLAM HYDROCHLORIDE
     Route: 048

REACTIONS (7)
  - Drug interaction [Unknown]
  - Lethargy [Recovering/Resolving]
  - Overdose [Unknown]
  - Drug ineffective [Unknown]
  - Dehydration [Recovering/Resolving]
  - Nausea [Recovering/Resolving]
  - Vomiting [Recovering/Resolving]
